FAERS Safety Report 5195730-0 (Version None)
Quarter: 2007Q1

REPORT INFORMATION
  Report Type: 
  Country: None (occurrence: None)
  Receive Date: 20070102
  Receipt Date: 20061220
  Transmission Date: 20070707
  Serious: Yes (Hospitalization)
  Sender: FDA-Public Use
  Company Number: JP-ROCHE-472499

PATIENT
  Age: 77 Year
  Sex: Male
  Weight: 64 kg

DRUGS (6)
  1. PANALDINE [Suspect]
     Indication: ACUTE MYOCARDIAL INFARCTION
     Dosage: OTHER INDICATIONS: PERCUTANEOUS TRANSLUMINAL CORONARY ANGIOPLASTY, THROMBOSIS PROPHYLAXIS.
     Route: 048
     Dates: start: 20061111, end: 20061120
  2. EUGLUCON [Suspect]
     Route: 048
     Dates: start: 20061111, end: 20061120
  3. BUFFERIN [Suspect]
     Indication: ACUTE MYOCARDIAL INFARCTION
     Dosage: OTHER INDICATION THROMBOSIS PROPHYLAXIS AFTER PCI
     Route: 048
     Dates: start: 20061110
  4. RENIVACE [Suspect]
     Indication: HYPERTENSION
     Route: 048
     Dates: start: 20061111, end: 20061115
  5. OMEPRAL [Suspect]
     Indication: GASTRIC ULCER
     Route: 048
     Dates: start: 20061111, end: 20061120
  6. DIOVAN [Suspect]
     Indication: HYPERTENSION
     Route: 048
     Dates: start: 20061116, end: 20061120

REACTIONS (2)
  - INTERSTITIAL LUNG DISEASE [None]
  - LYMPHOCYTE STIMULATION TEST POSITIVE [None]
